FAERS Safety Report 7758948-6 (Version None)
Quarter: 2011Q3

REPORT INFORMATION
  Report Type: 
  Country: None (occurrence: None)
  Receive Date: 20110919
  Receipt Date: 20110908
  Transmission Date: 20111222
  Serious: Yes (Other)
  Sender: FDA-Public Use
  Company Number: BR-US-EMD SERONO, INC.-7082115

PATIENT
  Age: 23 Year
  Sex: Female

DRUGS (1)
  1. SEROPHENE [Suspect]
     Indication: PRODUCT USED FOR UNKNOWN INDICATION
     Dates: start: 20110806, end: 20110810

REACTIONS (3)
  - URINARY TRACT INFECTION [None]
  - FEELING HOT [None]
  - PARAESTHESIA [None]
